FAERS Safety Report 10627157 (Version 1)
Quarter: 2014Q4

REPORT INFORMATION
  Report Type: Spontaneous
  Country: IT (occurrence: IT)
  Receive Date: 20141204
  Receipt Date: 20141204
  Transmission Date: 20150529
  Serious: Yes (Other)
  Sender: FDA-Public Use
  Company Number: IT-BAUSCH-BL-2014-009538

PATIENT
  Age: 75 Year
  Sex: Female

DRUGS (5)
  1. CARDIOASPIRIN 100MG [Concomitant]
     Indication: CEREBROVASCULAR ACCIDENT PROPHYLAXIS
     Dates: start: 20140101, end: 20140519
  2. ZOLPIDEM TARTRATE. [Suspect]
     Active Substance: ZOLPIDEM TARTRATE
     Indication: INTENTIONAL SELF-INJURY
     Route: 048
     Dates: start: 20140519, end: 20140519
  3. VASORETIC 20MGG+12,5MG [Concomitant]
     Indication: HYPERTENSION
     Dates: start: 20140101, end: 20140519
  4. XERISTAR 60MG [Concomitant]
     Indication: DEPRESSION
     Dates: start: 20140101, end: 20140519
  5. METFORMIN HCL [Concomitant]
     Active Substance: METFORMIN HYDROCHLORIDE
     Indication: TYPE 2 DIABETES MELLITUS
     Dates: start: 20140101, end: 20140519

REACTIONS (5)
  - Intentional self-injury [Recovering/Resolving]
  - Intentional overdose [Recovering/Resolving]
  - Speech disorder [Recovering/Resolving]
  - Dysarthria [None]
  - Drug abuse [Recovering/Resolving]

NARRATIVE: CASE EVENT DATE: 20140519
